FAERS Safety Report 21649394 (Version 1)
Quarter: 2022Q4

REPORT INFORMATION
  Report Type: Spontaneous
  Country: US (occurrence: US)
  Receive Date: 20221128
  Receipt Date: 20221128
  Transmission Date: 20230112
  Serious: Yes (Other)
  Sender: FDA-Public Use
  Company Number: US-GLAXOSMITHKLINE-USCH2022GSK046501

PATIENT

DRUGS (2)
  1. IBUPROFEN [Suspect]
     Active Substance: IBUPROFEN
     Indication: Postoperative care
     Dosage: 800 MG, QID
     Route: 048
  2. KETOROLAC [Suspect]
     Active Substance: KETOROLAC TROMETHAMINE
     Indication: Postoperative care
     Dosage: 15 MG
     Route: 042

REACTIONS (4)
  - Acute kidney injury [Unknown]
  - Renal tubular injury [Unknown]
  - Fatigue [Unknown]
  - Soft tissue inflammation [Unknown]
